FAERS Safety Report 9466073 (Version 2)
Quarter: 2014Q1

REPORT INFORMATION
  Report Type: Spontaneous
  Country: US (occurrence: US)
  Receive Date: 20130820
  Receipt Date: 20140213
  Transmission Date: 20141002
  Serious: Yes (Other)
  Sender: FDA-Public Use
  Company Number: US-ELI_LILLY_AND_COMPANY-US201308003754

PATIENT
  Age: 51 Year
  Sex: Male

DRUGS (18)
  1. ZYPREXA [Suspect]
     Indication: AGITATION
     Dosage: 10 MG, QD
     Route: 048
  2. ZYPREXA [Suspect]
     Indication: BIPOLAR DISORDER
  3. ZYPREXA [Suspect]
     Indication: AUTISM SPECTRUM DISORDER
  4. AUGMENTIN [Concomitant]
     Dosage: 1 DF, UNKNOWN
  5. ZITHROMAX [Concomitant]
     Dosage: 1 DF, UNKNOWN
  6. PAXIL [Concomitant]
     Dosage: 1 DF, UNKNOWN
  7. TEGRETOL [Concomitant]
     Dosage: 1 DF, UNKNOWN
  8. CLARITIN                           /00917501/ [Concomitant]
     Dosage: 1 DF, UNKNOWN
  9. FLOMAX                             /00889901/ [Concomitant]
     Dosage: 1 DF, UNKNOWN
  10. TIMOPTIC [Concomitant]
     Dosage: 1 DF, UNKNOWN
  11. ZINC [Concomitant]
     Dosage: 1 DF, UNKNOWN
  12. GLUCONATE SODIUM [Concomitant]
     Dosage: 1 DF, UNKNOWN
  13. MULTIVITAMIN                       /00097801/ [Concomitant]
     Dosage: 1 DF, UNKNOWN
  14. PROTONIX [Concomitant]
     Indication: GASTROOESOPHAGEAL REFLUX DISEASE
     Dosage: 1 DF, UNKNOWN
  15. VITAMIN D3 [Concomitant]
     Dosage: 1 DF, UNKNOWN
  16. CALCIUM CITRATE [Concomitant]
     Dosage: 1 DF, UNKNOWN
  17. COGENTIN [Concomitant]
     Indication: PRODUCT USED FOR UNKNOWN INDICATION
     Route: 065
  18. LITHIUM [Concomitant]
     Indication: PRODUCT USED FOR UNKNOWN INDICATION
     Route: 065

REACTIONS (5)
  - Pneumonia aspiration [Recovered/Resolved]
  - Choking [Not Recovered/Not Resolved]
  - Dysphagia [Not Recovered/Not Resolved]
  - Oesophageal stenosis [Unknown]
  - Tooth loss [Unknown]
